FAERS Safety Report 19209313 (Version 2)
Quarter: 2021Q2

REPORT INFORMATION
  Report Type: Spontaneous
  Country: GB (occurrence: GB)
  Receive Date: 20210503
  Receipt Date: 20210505
  Transmission Date: 20210717
  Serious: Yes (Hospitalization)
  Sender: FDA-Public Use
  Company Number: GB-TEVA-2021-GB-1906375

PATIENT
  Age: 68 Year
  Sex: Female

DRUGS (5)
  1. DASATINIB. [Suspect]
     Active Substance: DASATINIB
     Route: 065
     Dates: start: 202001, end: 202010
  2. BOSUTINIB [Concomitant]
     Active Substance: BOSUTINIB
     Indication: CHRONIC MYELOID LEUKAEMIA
     Dates: start: 20210202, end: 20210216
  3. ROMIPLOSTIM [Concomitant]
     Active Substance: ROMIPLOSTIM
  4. PREDNISOLONE. [Suspect]
     Active Substance: PREDNISOLONE
     Route: 065
  5. NILOTINIB [Suspect]
     Active Substance: NILOTINIB
     Route: 065
     Dates: start: 20201026, end: 202101

REACTIONS (6)
  - Conjunctival haemorrhage [Recovered/Resolved]
  - Immune thrombocytopenia [Not Recovered/Not Resolved]
  - Petechiae [Unknown]
  - Thrombocytopenia [Unknown]
  - Blood blister [Unknown]
  - Neutropenia [Recovered/Resolved]

NARRATIVE: CASE EVENT DATE: 20210217
